FAERS Safety Report 6891741-5 (Version None)
Quarter: 2010Q3

REPORT INFORMATION
  Report Type: 
  Country: None (occurrence: None)
  Receive Date: 20100731
  Receipt Date: 20071012
  Transmission Date: 20110219
  Serious: No
  Sender: FDA-Public Use
  Company Number: US-PFIZER INC-2007083988

PATIENT
  Sex: Male

DRUGS (2)
  1. DEPO-MEDROL [Suspect]
  2. LYRICA [Interacting]

REACTIONS (3)
  - BACK PAIN [None]
  - DRUG INEFFECTIVE [None]
  - DRUG INTERACTION [None]
